FAERS Safety Report 22076614 (Version 1)
Quarter: 2023Q1

REPORT INFORMATION
  Report Type: Spontaneous
  Country: CH (occurrence: CH)
  Receive Date: 20230309
  Receipt Date: 20230309
  Transmission Date: 20230418
  Serious: Yes (Hospitalization)
  Sender: FDA-Public Use
  Company Number: None

PATIENT
  Age: 31 Year
  Sex: Female
  Weight: 55 kg

DRUGS (3)
  1. XARELTO [Suspect]
     Active Substance: RIVAROXABAN
     Indication: Thrombosis prophylaxis
     Dosage: 10 MG, UNK
     Route: 048
     Dates: start: 20230205, end: 20230209
  2. IBUPROFEN [Suspect]
     Active Substance: IBUPROFEN
     Indication: Procedural pain
     Dosage: 400 MG, UNK
     Route: 048
     Dates: start: 20230203, end: 20230209
  3. NOVALGIN (METAMIZOLE SODIUM) [Suspect]
     Active Substance: METAMIZOLE SODIUM
     Indication: Procedural pain
     Dosage: 500 MG, UNK
     Route: 048
     Dates: start: 20230204, end: 20230209

REACTIONS (2)
  - Agranulocytosis [Recovered/Resolved]
  - Febrile neutropenia [Recovered/Resolved]

NARRATIVE: CASE EVENT DATE: 20230209
